FAERS Safety Report 4561307-0 (Version None)
Quarter: 2005Q1

REPORT INFORMATION
  Report Type: 
  Country: None (occurrence: None)
  Receive Date: 20050124
  Receipt Date: 20050110
  Transmission Date: 20050727
  Serious: Yes (Hospitalization)
  Sender: FDA-Public Use
  Company Number: 2005015255

PATIENT

DRUGS (1)
  1. AROMASIN [Suspect]
     Indication: ILL-DEFINED DISORDER
     Dates: start: 20030701

REACTIONS (1)
  - PANCREATITIS ACUTE [None]
